FAERS Safety Report 24769075 (Version 1)
Quarter: 2024Q4

REPORT INFORMATION
  Report Type: Spontaneous
  Country: US (occurrence: US)
  Receive Date: 20241224
  Receipt Date: 20241224
  Transmission Date: 20250115
  Serious: Yes (Death, Hospitalization, Other)
  Sender: ALEXION PHARMACEUTICALS
  Company Number: US-ASTRAZENECA-202412USA016846US

PATIENT
  Age: 72 Year

DRUGS (8)
  1. SEROQUEL [Suspect]
     Active Substance: QUETIAPINE FUMARATE
  2. TRAMADOL [Suspect]
     Active Substance: TRAMADOL
  3. ALPRAZOLAM [Suspect]
     Active Substance: ALPRAZOLAM
  4. ESCITALOPRAM [Suspect]
     Active Substance: ESCITALOPRAM OXALATE
  5. CYCLOBENZAPRINE [Suspect]
     Active Substance: CYCLOBENZAPRINE
  6. CLONAZEPAM [Suspect]
     Active Substance: CLONAZEPAM
  7. ONDANSETRON [Suspect]
     Active Substance: ONDANSETRON
  8. METHOCARBAMOL [Suspect]
     Active Substance: METHOCARBAMOL

REACTIONS (3)
  - Toxicity to various agents [Fatal]
  - Completed suicide [Fatal]
  - Cardio-respiratory arrest [Fatal]
